FAERS Safety Report 22160445 (Version 1)
Quarter: 2023Q1

REPORT INFORMATION
  Report Type: Spontaneous
  Country: RU (occurrence: RU)
  Receive Date: 20230331
  Receipt Date: 20230331
  Transmission Date: 20230418
  Serious: Yes (Other)
  Sender: FDA-Public Use
  Company Number: RU-002147023-NVSC2023RU071416

PATIENT
  Age: 32 Year
  Sex: Male
  Weight: 71 kg

DRUGS (2)
  1. TEGRETOL XR [Suspect]
     Active Substance: CARBAMAZEPINE
     Indication: Epilepsy
     Dosage: 800 MG, QD
     Route: 048
     Dates: start: 20210415, end: 20220401
  2. OXCARBAZEPINE [Concomitant]
     Active Substance: OXCARBAZEPINE
     Indication: Epilepsy
     Dosage: 750 MG, BID
     Route: 048

REACTIONS (2)
  - Epilepsy congenital [Not Recovered/Not Resolved]
  - Drug effect less than expected [Unknown]
